FAERS Safety Report 5965289-6 (Version None)
Quarter: 2008Q4

REPORT INFORMATION
  Report Type: 
  Country: None (occurrence: None)
  Receive Date: 20081124
  Receipt Date: 20081124
  Transmission Date: 20090506
  Serious: Yes (Other)
  Sender: FDA-Public Use
  Company Number: None

PATIENT
  Age: 29 Year
  Sex: Male
  Weight: 74.8435 kg

DRUGS (2)
  1. TRILEPTAL [Suspect]
     Indication: EPILEPSY
     Dosage: 900 MG 2 TIMES DAILY PO
     Route: 048
     Dates: start: 20050901, end: 20081011
  2. OXCARBAZEPINE [Suspect]
     Indication: EPILEPSY
     Dosage: 900 MG 2 TIMES DAILY PO
     Route: 048
     Dates: start: 20081011, end: 20081015

REACTIONS (2)
  - GRAND MAL CONVULSION [None]
  - THERAPEUTIC RESPONSE UNEXPECTED WITH DRUG SUBSTITUTION [None]
